FAERS Safety Report 8115515-2 (Version None)
Quarter: 2012Q1

REPORT INFORMATION
  Report Type: 
  Country: None (occurrence: None)
  Receive Date: 20120118
  Receipt Date: 20120106
  Transmission Date: 20120608
  Serious: Yes (Hospitalization)
  Sender: FDA-Public Use
  Company Number: 2011PROUSA00815

PATIENT
  Age: 83 Year
  Sex: Male
  Weight: 93.8 kg

DRUGS (13)
  1. SPIRONOLACTONE [Suspect]
  2. PROVENGE [Suspect]
     Indication: PROSTATE CANCER METASTATIC
     Dosage: 250 ML, SINGLE, INTRAVENOUS
     Route: 042
     Dates: start: 20111031, end: 20111031
  3. ATENOLOL [Concomitant]
  4. AMLODIPINE [Concomitant]
  5. DENOSUMAB [Concomitant]
  6. LISINOPRIL [Suspect]
  7. SELENIUM [Concomitant]
  8. LUPRON [Concomitant]
  9. ACETYLSALICYLIC ACID SRT [Concomitant]
  10. FOLIC ACID [Concomitant]
  11. ASACOL [Concomitant]
  12. PROVENGE [Suspect]
     Dosage: 250 ML, SINGLE, INTRAVENOUS
     Dates: start: 20111114, end: 20111114
  13. CITRACAL + D (CALCIUM CITRATE, ERGOCALCIFEROL) [Concomitant]

REACTIONS (12)
  - BACTERAEMIA [None]
  - PULMONARY OEDEMA [None]
  - ATRIAL FIBRILLATION [None]
  - PALPITATIONS [None]
  - DEVICE RELATED INFECTION [None]
  - HYPERKALAEMIA [None]
  - STAPHYLOCOCCAL BACTERAEMIA [None]
  - CARDIAC FAILURE [None]
  - BRAIN NATRIURETIC PEPTIDE INCREASED [None]
  - DYSPNOEA EXERTIONAL [None]
  - PLEURAL EFFUSION [None]
  - VENTRICULAR DYSFUNCTION [None]
